FAERS Safety Report 11917315 (Version 1)
Quarter: 2016Q1

REPORT INFORMATION
  Report Type: Spontaneous
  Country: SE (occurrence: SE)
  Receive Date: 20160114
  Receipt Date: 20160114
  Transmission Date: 20160526
  Serious: Yes (Hospitalization)
  Sender: FDA-Public Use
  Company Number: SE-TEVA-625671ISR

PATIENT
  Age: 72 Year
  Sex: Female

DRUGS (1)
  1. OXAZEPAM. [Suspect]
     Active Substance: OXAZEPAM
     Route: 065

REACTIONS (2)
  - Respiratory failure [Unknown]
  - Carbon dioxide abnormal [Unknown]
